FAERS Safety Report 6639563 (Version 3)
Quarter: 2013Q1

REPORT INFORMATION
  Report Type: Spontaneous
  Country: NL (occurrence: None)
  Receive Date: 20080428
  Receipt Date: 20130118
  Transmission Date: 20140127
  Serious: Yes (Hospitalization)
  Sender: FDA-Public Use
  Company Number: 2008AP000970

PATIENT
  Age: 39 Year
  Sex: Female

DRUGS (2)
  1. TOPIRAMATE [Suspect]
     Indication: COMPLEX PARTIAL SEIZURES
     Dosage: 50 MG; QD ; 200 MG; QD; 250 MG; QD; 275 MG; 300 MG; QD
     Dates: start: 199803
  2. CARBAMAZEPINE [Suspect]
     Indication: COMPLEX PARTIAL SEIZURES
     Dosage: 800 MG; QD

REACTIONS (12)
  - Drug interaction [None]
  - Weight decreased [None]
  - Somnolence [None]
  - Loss of consciousness [None]
  - Hypoglycaemia [None]
  - Metabolic acidosis [None]
  - Acute hepatic failure [None]
  - Encephalopathy [None]
  - Renal failure [None]
  - Liver transplant [None]
  - Hepatic necrosis [None]
  - Coagulopathy [None]
